FAERS Safety Report 10353669 (Version 3)
Quarter: 2015Q1

REPORT INFORMATION
  Report Type: Spontaneous
  Country: US (occurrence: US)
  Receive Date: 20140731
  Receipt Date: 20150128
  Transmission Date: 20150720
  Serious: Yes (Death)
  Sender: FDA-Public Use
  Company Number: US-AMGEN INC.-USASP2014056504

PATIENT
  Age: 89 Year
  Sex: Female
  Weight: 43.09 kg

DRUGS (1)
  1. PROLIA [Suspect]
     Active Substance: DENOSUMAB
     Indication: OSTEOPOROSIS
     Dosage: 60 MG, Q6MO
     Route: 058
     Dates: start: 20120126, end: 20130805

REACTIONS (1)
  - Death [Fatal]

NARRATIVE: CASE EVENT DATE: 20140510
